FAERS Safety Report 7099922-5 (Version None)
Quarter: 2010Q4

REPORT INFORMATION
  Report Type: 
  Country: None (occurrence: None)
  Receive Date: 20101112
  Receipt Date: 20090128
  Transmission Date: 20110411
  Serious: No
  Sender: FDA-Public Use
  Company Number: US-KINGPHARMUSA00001-K200900093

PATIENT
  Age: 62 Year
  Sex: Female
  Weight: 54.875 kg

DRUGS (2)
  1. LEVOXYL [Suspect]
     Indication: HYPOTHYROIDISM
     Dosage: 50 MCG, QD
     Route: 048
     Dates: start: 20080101
  2. LEVOXYL [Suspect]
     Dosage: 25 MCG, QD
     Route: 048

REACTIONS (5)
  - CHEST DISCOMFORT [None]
  - HEADACHE [None]
  - MUSCLE TWITCHING [None]
  - NAUSEA [None]
  - WEIGHT DECREASED [None]
